FAERS Safety Report 4598421-X (Version None)
Quarter: 2005Q1

REPORT INFORMATION
  Report Type: 
  Country: None (occurrence: None)
  Receive Date: 20050303
  Receipt Date: 20050303
  Transmission Date: 20050727
  Serious: Yes (Death, Other)
  Sender: FDA-Public Use
  Company Number: None

PATIENT
  Sex: Female
  Weight: 72 kg

DRUGS (7)
  1. ALLOPURINOL [Suspect]
     Dosage: 300 MG PO QD ON DAYS 1-14
     Route: 048
     Dates: start: 20050208
  2. CYCLOPHOSPHAMIDE [Suspect]
     Indication: ACUTE LYMPHOCYTIC LEUKAEMIA
     Dosage: 1200 MG/M2 IV OVER 15-30 MIN ON DAY 1
     Route: 042
  3. DAUNORUBICIN HCL [Suspect]
     Indication: ACUTE LYMPHOCYTIC LEUKAEMIA
     Dosage: 80 MG/M2/DAY X 3 DAYS IV ON DAYS 1, 2, 3
     Route: 042
  4. VINCRISTINE [Suspect]
     Indication: ACUTE LYMPHOCYTIC LEUKAEMIA
     Dosage: 2 MG IVP ON DAYS 1 AND 15, 22
     Route: 042
  5. DEXAMETHASONE [Suspect]
     Indication: ACUTE LYMPHOCYTIC LEUKAEMIA
     Dosage: 5 MG /M2 PO BID ON  DAYS 1-7 AND 15-21
     Route: 048
  6. ELSPAR [Suspect]
     Indication: ACUTE LYMPHOCYTIC LEUKAEMIA
     Dosage: 6000 U/M2 SC/IM ON DAYS 5, 8, 11, 15, 18 , 22
     Route: 058
  7. NEUPOGEN [Suspect]
     Indication: ACUTE LYMPHOCYTIC LEUKAEMIA
     Dosage: 5 MCG/KG/DAY SC STARTING DAY 4 X 7 DAYS AND CONTINUING UNTIL ANC IS } 5000 MCL PRN
     Route: 058

REACTIONS (9)
  - BLOOD PH DECREASED [None]
  - DYSPNOEA [None]
  - HEPATORENAL FAILURE [None]
  - HYPOPERFUSION [None]
  - HYPOTENSION [None]
  - MULTI-ORGAN FAILURE [None]
  - PNEUMONIA [None]
  - RESPIRATORY FAILURE [None]
  - SEPSIS [None]
